FAERS Safety Report 13843933 (Version 2)
Quarter: 2017Q4

REPORT INFORMATION
  Report Type: Report from Study
  Country: DE (occurrence: DE)
  Receive Date: 20170808
  Receipt Date: 20171010
  Transmission Date: 20180320
  Serious: Yes (Other)
  Sender: FDA-Public Use
  Company Number: DE-ALIMERA SCIENCES LIMITED-DE-IL-2017-003487

PATIENT

DRUGS (5)
  1. ILUVIEN [Suspect]
     Active Substance: FLUOCINOLONE ACETONIDE
     Indication: DIABETIC RETINAL OEDEMA
     Dosage: 0.25 ?G, QD, LEFT EYE
     Route: 031
     Dates: start: 20151215
  2. INSULIN [Concomitant]
     Active Substance: INSULIN NOS
     Indication: DIABETES MELLITUS
     Dosage: UNK
     Dates: start: 1998
  3. ILUVIEN [Suspect]
     Active Substance: FLUOCINOLONE ACETONIDE
     Dosage: 0.25 ?G, QD RIGHT EYE
     Route: 031
     Dates: start: 20160323
  4. THYROXINE [Concomitant]
     Active Substance: LEVOTHYROXINE
     Indication: HYPOTHYROIDISM
     Dosage: UNK
     Dates: start: 2014
  5. OFLOXACIN EYE DROPS [Concomitant]
     Indication: ANTIBIOTIC PROPHYLAXIS
     Dosage: UNK, RIGHT EYE
     Dates: start: 20160323

REACTIONS (5)
  - Cataract operation [Recovered/Resolved]
  - Intraocular lens implant [Recovered/Resolved]
  - Intraocular lens implant [Recovered/Resolved]
  - Cataract operation [Recovered/Resolved]
  - Cataract [Recovered/Resolved]

NARRATIVE: CASE EVENT DATE: 20161220
